FAERS Safety Report 6543143-9 (Version None)
Quarter: 2010Q1

REPORT INFORMATION
  Report Type: 
  Country: None (occurrence: None)
  Receive Date: 20100120
  Receipt Date: 20100108
  Transmission Date: 20100710
  Serious: Yes (Hospitalization)
  Sender: FDA-Public Use
  Company Number: DE-AMGEN-US344897

PATIENT
  Sex: Male
  Weight: 100 kg

DRUGS (19)
  1. ENBREL [Suspect]
     Indication: RHEUMATOID ARTHRITIS
     Route: 058
     Dates: start: 20090219, end: 20090401
  2. ENBREL [Suspect]
     Dosage: UNKNOWN
     Route: 058
     Dates: start: 20090101, end: 20090101
  3. HUMALOG [Concomitant]
     Route: 065
  4. ACTRAPHANE HM [Concomitant]
     Route: 065
  5. PREDNISOLONE [Concomitant]
     Indication: RHEUMATOID ARTHRITIS
     Dosage: 12.5 - 20 MG ONCE DAILY
     Route: 048
     Dates: start: 20040801
  6. ARCOXIA [Concomitant]
     Route: 065
     Dates: start: 20050601
  7. LORZAAR [Concomitant]
     Route: 065
  8. HYDROMORPHONE HCL [Concomitant]
     Route: 065
  9. SPIRONOLACTONE [Concomitant]
     Route: 065
  10. PROTAPHAN [Concomitant]
     Route: 065
  11. SIMVASTATIN [Concomitant]
     Route: 065
  12. ALLOPURINOL [Concomitant]
     Route: 065
  13. PANTOPRAZOLE [Concomitant]
     Route: 065
     Dates: start: 20090401
  14. DIURAPID [Concomitant]
     Route: 065
     Dates: start: 20090401
  15. TAMSULOSIN HCL [Concomitant]
     Route: 065
  16. FOSAMAX [Concomitant]
     Route: 065
  17. CALCILAC [Concomitant]
     Route: 065
  18. ISONIAZID [Concomitant]
     Indication: ANTIBIOTIC PROPHYLAXIS
     Dosage: UNKNOWN
     Route: 048
     Dates: start: 20090201, end: 20090401
  19. ISONIAZID [Concomitant]
     Route: 048
     Dates: start: 20090401

REACTIONS (5)
  - DEHYDRATION [None]
  - DYSPNOEA [None]
  - GENERAL PHYSICAL HEALTH DETERIORATION [None]
  - HYPERGLYCAEMIA [None]
  - RENAL FAILURE [None]
